FAERS Safety Report 10722812 (Version 8)
Quarter: 2017Q4

REPORT INFORMATION
  Report Type: Spontaneous
  Country: CA (occurrence: CA)
  Receive Date: 20150120
  Receipt Date: 20171017
  Transmission Date: 20180320
  Serious: Yes (Hospitalization, Other)
  Sender: FDA-Public Use
  Company Number: CA-ROCHE-1522997

PATIENT
  Age: 63 Year
  Sex: Female

DRUGS (10)
  1. PREDNISONE. [Concomitant]
     Active Substance: PREDNISONE
     Indication: PRODUCT USED FOR UNKNOWN INDICATION
     Route: 065
  2. SEEBRI [Suspect]
     Active Substance: GLYCOPYRRONIUM
     Indication: PULMONARY FIBROSIS
     Route: 065
  3. ALVESCO [Concomitant]
     Active Substance: CICLESONIDE
     Indication: PRODUCT USED FOR UNKNOWN INDICATION
     Route: 065
  4. VENTOLINE [Concomitant]
     Active Substance: ALBUTEROL
     Indication: PRODUCT USED FOR UNKNOWN INDICATION
     Route: 065
  5. XOLAIR [Suspect]
     Active Substance: OMALIZUMAB
     Dosage: BATCH NUMBER CLSC SAINT RAYMOND
     Route: 058
  6. XOLAIR [Suspect]
     Active Substance: OMALIZUMAB
     Indication: ASTHMA
     Route: 058
     Dates: start: 20100604
  7. SYMBICORT [Concomitant]
     Active Substance: BUDESONIDE\FORMOTEROL FUMARATE DIHYDRATE
     Indication: PRODUCT USED FOR UNKNOWN INDICATION
     Route: 065
  8. XOLAIR [Suspect]
     Active Substance: OMALIZUMAB
     Dosage: 2 DF EQUIVALENT TO 300 MG
     Route: 058
     Dates: start: 20160808
  9. ENBREL [Suspect]
     Active Substance: ETANERCEPT
     Indication: ARTHRITIS
     Route: 065
     Dates: start: 2013
  10. REACTINE (CANADA) [Concomitant]
     Active Substance: CETIRIZINE HYDROCHLORIDE
     Indication: PRODUCT USED FOR UNKNOWN INDICATION
     Route: 065

REACTIONS (22)
  - Fall [Unknown]
  - Pneumonia [Unknown]
  - Product preparation error [Unknown]
  - Concomitant disease aggravated [Unknown]
  - Skin cancer [Unknown]
  - Forced expiratory volume abnormal [Unknown]
  - Vomiting [Unknown]
  - Increased upper airway secretion [Unknown]
  - Hypersensitivity [Unknown]
  - Pneumonia viral [Unknown]
  - Cerebral haemorrhage [Unknown]
  - Mobility decreased [Unknown]
  - Nasopharyngitis [Unknown]
  - Fracture [Unknown]
  - Cough [Not Recovered/Not Resolved]
  - Pulmonary fibrosis [Unknown]
  - Contusion [Unknown]
  - Arthritis [Unknown]
  - Incorrect dose administered [Unknown]
  - Oral candidiasis [Unknown]
  - Allergy to animal [Unknown]
  - Chest pain [Unknown]

NARRATIVE: CASE EVENT DATE: 201311
